FAERS Safety Report 5984033-X (Version None)
Quarter: 2008Q4

REPORT INFORMATION
  Report Type: 
  Country: None (occurrence: None)
  Receive Date: 20081208
  Receipt Date: 20081126
  Transmission Date: 20090506
  Serious: Yes (Hospitalization)
  Sender: FDA-Public Use
  Company Number: JP-WYE-H06893008

PATIENT
  Sex: Male

DRUGS (6)
  1. ANCARON [Suspect]
     Indication: VENTRICULAR TACHYCARDIA
     Route: 048
     Dates: start: 20030109, end: 20081111
  2. ARTIST [Concomitant]
     Route: 048
     Dates: start: 20060101
  3. BLOPRESS [Concomitant]
     Route: 048
     Dates: start: 20030101
  4. ASPIRIN [Concomitant]
     Route: 048
     Dates: start: 20030101
  5. GLIMICRON [Concomitant]
     Route: 048
     Dates: start: 20030101
  6. LASIX [Concomitant]
     Route: 048
     Dates: start: 20030101

REACTIONS (1)
  - LUNG DISORDER [None]
